FAERS Safety Report 19846780 (Version 2)
Quarter: 2021Q3

REPORT INFORMATION
  Report Type: Other
  Country: US (occurrence: US)
  Receive Date: 20210917
  Receipt Date: 20210921
  Transmission Date: 20211014
  Serious: Yes (Other)
  Sender: FDA-Public Use
  Company Number: US-ROCHE-2908835

PATIENT
  Sex: Male

DRUGS (1)
  1. OCREVUS [Suspect]
     Active Substance: OCRELIZUMAB
     Indication: RELAPSING-REMITTING MULTIPLE SCLEROSIS
     Dosage: DATE OF PREVIOUS INFUSION: 19/FEB/2020,, 31/AUG/2020, DATE OF NEXT INFUSION: 18/AUG/2020
     Route: 042

REACTIONS (1)
  - Hepatitis B virus test positive [Recovered/Resolved]
